FAERS Safety Report 7690319-3 (Version None)
Quarter: 2011Q3

REPORT INFORMATION
  Report Type: 
  Country: None (occurrence: None)
  Receive Date: 20110818
  Receipt Date: 20110808
  Transmission Date: 20111222
  Serious: Yes (Death)
  Sender: FDA-Public Use
  Company Number: US-GENZYME-CLOF-1001743

PATIENT

DRUGS (6)
  1. ANTI-THYMOCYTE GLOBULIN NOS [Suspect]
     Indication: HAEMATOLOGICAL MALIGNANCY
     Dosage: UNK
     Route: 065
  2. CLOLAR [Suspect]
     Indication: HAEMATOLOGICAL MALIGNANCY
     Dosage: 40 MG/M2, UNK
     Route: 065
  3. CLOLAR [Suspect]
     Indication: STEM CELL TRANSPLANT
  4. CYCLOSPORINE [Concomitant]
     Indication: PROPHYLAXIS AGAINST GRAFT VERSUS HOST DISEASE
  5. ANTI-THYMOCYTE GLOBULIN NOS [Suspect]
     Indication: STEM CELL TRANSPLANT
  6. MYCOPHENOLATE MOFETIL [Concomitant]
     Indication: PROPHYLAXIS AGAINST GRAFT VERSUS HOST DISEASE

REACTIONS (1)
  - DEATH [None]
